FAERS Safety Report 17142788 (Version 1)
Quarter: 2019Q4

REPORT INFORMATION
  Report Type: Spontaneous
  Country: US (occurrence: US)
  Receive Date: 20191211
  Receipt Date: 20191211
  Transmission Date: 20200122
  Serious: Yes (Death, Other)
  Sender: FDA-Public Use
  Company Number: NVSC2019US064749

PATIENT
  Sex: Male

DRUGS (4)
  1. DIPHENHYDRAMINE HYDROCHLORIDE. [Suspect]
     Active Substance: DIPHENHYDRAMINE HYDROCHLORIDE
     Indication: PRODUCT USED FOR UNKNOWN INDICATION
     Dosage: UNK
     Route: 065
  2. RANITIDINE. [Suspect]
     Active Substance: RANITIDINE
     Indication: PRODUCT USED FOR UNKNOWN INDICATION
     Dosage: UNK
     Route: 065
  3. CITALOPRAM [Suspect]
     Active Substance: CITALOPRAM HYDROBROMIDE
     Indication: PRODUCT USED FOR UNKNOWN INDICATION
     Dosage: UNK
     Route: 065
  4. ACETAMINOPHEN (PARACETAMOL) [Suspect]
     Active Substance: ACETAMINOPHEN
     Indication: PRODUCT USED FOR UNKNOWN INDICATION
     Dosage: UNK
     Route: 065

REACTIONS (13)
  - Hepatotoxicity [Unknown]
  - Toxicity to various agents [Fatal]
  - Nervous system disorder [Unknown]
  - Myocardial ischaemia [Unknown]
  - Acute lung injury [Unknown]
  - Brain death [Fatal]
  - Thrombocytopenia [Unknown]
  - Metabolic acidosis [Unknown]
  - Coagulopathy [Unknown]
  - Acute kidney injury [Unknown]
  - Pneumonia aspiration [Unknown]
  - Hypotension [Unknown]
  - Hypoglycaemia [Unknown]
